FAERS Safety Report 6690942-9 (Version None)
Quarter: 2010Q2

REPORT INFORMATION
  Report Type: 
  Country: None (occurrence: None)
  Receive Date: 20100421
  Receipt Date: 20100414
  Transmission Date: 20101027
  Serious: Yes (Death)
  Sender: FDA-Public Use
  Company Number: US-GILEAD-2010-0028309

PATIENT
  Sex: Female
  Weight: 90.8 kg

DRUGS (13)
  1. LETAIRIS [Suspect]
     Indication: PULMONARY ARTERIAL HYPERTENSION
     Route: 048
     Dates: start: 20090303, end: 20100331
  2. FUROSEMIDE [Concomitant]
  3. METOPROLOL TARTRATE [Concomitant]
  4. MICARDIS HCT [Concomitant]
  5. LORAZEPAM [Concomitant]
  6. MECLIZINE [Concomitant]
  7. EXCEDRIN (MIGRAINE) [Concomitant]
  8. RANEXA [Concomitant]
  9. KLOR-CON [Concomitant]
  10. FISH OIL [Concomitant]
  11. VITAMIN D [Concomitant]
  12. VITAMIN E [Concomitant]
  13. VITAMIN C [Concomitant]

REACTIONS (1)
  - DEATH [None]
